FAERS Safety Report 7661995-6 (Version None)
Quarter: 2011Q3

REPORT INFORMATION
  Report Type: 
  Country: None (occurrence: None)
  Receive Date: 20110805
  Receipt Date: 20101207
  Transmission Date: 20111222
  Serious: No
  Sender: FDA-Public Use
  Company Number: US-ABBOTT-10P-163-0690149-00

PATIENT
  Sex: Female
  Weight: 82.628 kg

DRUGS (6)
  1. SYNTHROID [Concomitant]
     Indication: HYPOTHYROIDISM
  2. CLONIDINE [Concomitant]
     Indication: HYPERTENSION
  3. ASPIRIN [Concomitant]
     Indication: PRODUCT USED FOR UNKNOWN INDICATION
  4. COREG [Concomitant]
     Indication: HYPERTENSION
  5. CARDURA [Concomitant]
     Indication: HYPERTENSION
  6. NIASPAN [Suspect]
     Indication: BLOOD TRIGLYCERIDES INCREASED
     Dates: start: 20101203

REACTIONS (6)
  - FEELING HOT [None]
  - ABDOMINAL DISTENSION [None]
  - FLUSHING [None]
  - PRURITUS [None]
  - RASH [None]
  - ABDOMINAL PAIN [None]
